FAERS Safety Report 16988070 (Version 1)
Quarter: 2019Q4

REPORT INFORMATION
  Report Type: Spontaneous
  Country: US (occurrence: US)
  Receive Date: 20190919
  Receipt Date: 20190919
  Transmission Date: 20200122
  Serious: No
  Sender: FDA-Public Use
  Company Number: None

PATIENT
  Age: 63 Year
  Sex: Female

DRUGS (1)
  1. PREZCOBIX [Suspect]
     Active Substance: COBICISTAT\DARUNAVIR ETHANOLATE
     Dosage: ?          OTHER DOSE:800-150MG;?
     Route: 048
     Dates: start: 201703

REACTIONS (2)
  - Gastrooesophageal reflux disease [None]
  - Pain in extremity [None]

NARRATIVE: CASE EVENT DATE: 20190919
